FAERS Safety Report 19370727 (Version 4)
Quarter: 2021Q4

REPORT INFORMATION
  Report Type: Report from Study
  Country: US (occurrence: US)
  Receive Date: 20210603
  Receipt Date: 20211206
  Transmission Date: 20220303
  Serious: Yes (Other)
  Sender: FDA-Public Use
  Company Number: NVSC2021US117697

PATIENT
  Sex: Female

DRUGS (1)
  1. ENTRESTO [Suspect]
     Active Substance: SACUBITRIL\VALSARTAN
     Indication: Product used for unknown indication
     Dosage: 50 MG (24/26 MG)
     Route: 048
     Dates: start: 20210403

REACTIONS (7)
  - Device inappropriate shock delivery [Recovering/Resolving]
  - Pericardial effusion [Unknown]
  - Ejection fraction decreased [Not Recovered/Not Resolved]
  - Heart rate increased [Unknown]
  - Heart valve incompetence [Not Recovered/Not Resolved]
  - Dyspnoea [Unknown]
  - Blood pressure decreased [Not Recovered/Not Resolved]

NARRATIVE: CASE EVENT DATE: 20210101
